FAERS Safety Report 5286187-X (Version None)
Quarter: 2007Q1

REPORT INFORMATION
  Report Type: 
  Country: None (occurrence: None)
  Receive Date: 20070104
  Receipt Date: 20061018
  Transmission Date: 20070707
  Serious: No
  Sender: FDA-Public Use
  Company Number: BDI-008772

PATIENT
  Age: 38 Year
  Sex: Female

DRUGS (1)
  1. MULTIHANCE [Suspect]
     Indication: NUCLEAR MAGNETIC RESONANCE IMAGING BRAIN
     Dosage: 6 ML ONCE IV
     Route: 042
     Dates: start: 20061018, end: 20061018

REACTIONS (3)
  - PARAESTHESIA [None]
  - SNEEZING [None]
  - URTICARIA [None]
